FAERS Safety Report 15035079 (Version 1)
Quarter: 2018Q2

REPORT INFORMATION
  Report Type: Spontaneous
  Country: US (occurrence: US)
  Receive Date: 20180620
  Receipt Date: 20180620
  Transmission Date: 20180711
  Serious: No
  Sender: FDA-Public Use
  Company Number: US-PFIZER INC-2018245434

PATIENT
  Sex: Female

DRUGS (1)
  1. ADVIL [Suspect]
     Active Substance: IBUPROFEN
     Indication: PAIN
     Dosage: UNK(TOOK 3 DOSES; TOOK 2 ADVIL AT EACH DOSE)

REACTIONS (3)
  - Pain [Unknown]
  - Condition aggravated [Unknown]
  - Flatulence [Unknown]
